FAERS Safety Report 9799324 (Version 2)
Quarter: 2014Q1

REPORT INFORMATION
  Report Type: Spontaneous
  Country: JP (occurrence: JP)
  Receive Date: 20140106
  Receipt Date: 20140211
  Transmission Date: 20141002
  Serious: Yes (Life-Threatening)
  Sender: FDA-Public Use
  Company Number: JP-BRISTOL-MYERS SQUIBB COMPANY-19951383

PATIENT
  Age: 69 Year
  Sex: Male
  Weight: 53 kg

DRUGS (2)
  1. ELIQUIS [Suspect]
     Indication: THROMBOSIS PROPHYLAXIS
     Dosage: 2.5MG TABS
     Route: 048
     Dates: start: 20131123, end: 20131205
  2. BAYASPIRIN [Suspect]
     Indication: ANGINA PECTORIS
     Dosage: TAB
     Route: 048

REACTIONS (1)
  - Cardiac tamponade [Recovered/Resolved]
